FAERS Safety Report 9341277 (Version 1)
Quarter: 2013Q2

REPORT INFORMATION
  Report Type: Spontaneous
  Country: US (occurrence: None)
  Receive Date: 20130610
  Receipt Date: 20130610
  Transmission Date: 20140414
  Serious: Yes (Other)
  Sender: FDA-Public Use
  Company Number: None

PATIENT
  Age: 71 Year
  Sex: Female
  Weight: 64.41 kg

DRUGS (1)
  1. BUPIVACAINE, 0.75% IN DEXTROSE 8.25% 2 ML AMPULE, HOSPIRA [Suspect]

REACTIONS (1)
  - Drug ineffective [None]
